FAERS Safety Report 10745785 (Version 1)
Quarter: 2015Q1

REPORT INFORMATION
  Report Type: Spontaneous
  Country: US (occurrence: None)
  Receive Date: 20150127
  Receipt Date: 20150127
  Transmission Date: 20150721
  Serious: Yes (Other)
  Sender: FDA-Public Use
  Company Number: None

PATIENT
  Age: 65 Year
  Sex: Female

DRUGS (14)
  1. AFINITOR [Suspect]
     Active Substance: EVEROLIMUS
     Indication: BREAST CANCER FEMALE
     Dosage: AFINITOR 10MG DAILY PO
     Route: 048
     Dates: start: 20130214
  2. ASPIRIN. [Concomitant]
     Active Substance: ASPIRIN
  3. LEVOTHROID [Concomitant]
     Active Substance: LEVOTHYROXINE SODIUM
  4. MULTIVITAMIN TAB MINERALS [Concomitant]
  5. BENADRYL [Concomitant]
     Active Substance: DIPHENHYDRAMINE HYDROCHLORIDE
  6. LORAZEPAM. [Concomitant]
     Active Substance: LORAZEPAM
  7. CLOBETASOL [Concomitant]
     Active Substance: CLOBETASOL
  8. IRON [Concomitant]
     Active Substance: IRON
  9. EXEMESTANE. [Concomitant]
     Active Substance: EXEMESTANE
  10. VIT C/VIT E [Concomitant]
  11. VALSART/HCTZ [Concomitant]
  12. PROCHLOROPER [Concomitant]
  13. CALCIUM [Concomitant]
     Active Substance: CALCIUM
  14. ELICERIN [Concomitant]

REACTIONS (3)
  - Hypoaesthesia oral [None]
  - Gingival erythema [None]
  - Gingival swelling [None]

NARRATIVE: CASE EVENT DATE: 20150104
